FAERS Safety Report 5509159-6 (Version None)
Quarter: 2007Q4

REPORT INFORMATION
  Report Type: 
  Country: None (occurrence: None)
  Receive Date: 20071107
  Receipt Date: 20071026
  Transmission Date: 20080405
  Serious: Yes (Death)
  Sender: FDA-Public Use
  Company Number: JP-ROCHE-511044

PATIENT
  Age: 77 Year
  Sex: Female
  Weight: 43 kg

DRUGS (11)
  1. ROCEPHIN [Suspect]
     Indication: URINARY TRACT INFECTION
     Dosage: REPORTED AS 1G BAG.
     Route: 041
     Dates: start: 20070803, end: 20070803
  2. SYMMETREL [Concomitant]
     Route: 048
  3. MENESIT [Concomitant]
     Route: 048
  4. MAGMITT [Concomitant]
     Route: 048
  5. RIVOTRIL [Concomitant]
     Route: 048
  6. HERBESSER R [Concomitant]
     Route: 048
  7. METHYCOBAL [Concomitant]
     Route: 048
  8. ASPIRIN [Concomitant]
     Route: 048
  9. ANPLAG [Concomitant]
     Route: 048
  10. JUVELA [Concomitant]
     Dosage: FORM: EXTERNAL PREPARATION (NOT OTHERWISE SPECIFIED).
     Route: 061
  11. VOLTAREN [Concomitant]
     Route: 054
     Dates: start: 20070803, end: 20070803

REACTIONS (3)
  - HEPATIC FUNCTION ABNORMAL [None]
  - PNEUMONIA [None]
  - SEPTIC SHOCK [None]
